FAERS Safety Report 14092317 (Version 1)
Quarter: 2017Q4

REPORT INFORMATION
  Report Type: Spontaneous
  Country: US (occurrence: US)
  Receive Date: 20171015
  Receipt Date: 20171015
  Transmission Date: 20180321
  Serious: Yes (Hospitalization, Disabling, Other)
  Sender: FDA-Public Use
  Company Number: None

PATIENT
  Age: 36 Year
  Sex: Female
  Weight: 87.3 kg

DRUGS (6)
  1. XANAX [Suspect]
     Active Substance: ALPRAZOLAM
     Indication: PALPITATIONS
     Route: 048
  2. PROBIOTIC [Concomitant]
     Active Substance: PROBIOTICS NOS
  3. XANAX [Suspect]
     Active Substance: ALPRAZOLAM
     Indication: INSOMNIA
     Route: 048
  4. VITAMIN C [Concomitant]
     Active Substance: ASCORBIC ACID
  5. MAGNESIUM [Concomitant]
     Active Substance: MAGNESIUM
  6. VITAMIN D [Concomitant]
     Active Substance: CHOLECALCIFEROL

REACTIONS (17)
  - Chills [None]
  - Fear [None]
  - Decreased appetite [None]
  - Agitation [None]
  - Morbid thoughts [None]
  - Hyperhidrosis [None]
  - Paraesthesia [None]
  - Palpitations [None]
  - Nausea [None]
  - Muscle spasms [None]
  - Weight decreased [None]
  - Withdrawal syndrome [None]
  - Illness anxiety disorder [None]
  - Dyskinesia [None]
  - Alopecia [None]
  - Pain [None]
  - Mania [None]
